FAERS Safety Report 7319998-7 (Version None)
Quarter: 2011Q1

REPORT INFORMATION
  Report Type: 
  Country: None (occurrence: None)
  Receive Date: 20110228
  Receipt Date: 20110221
  Transmission Date: 20110831
  Serious: Yes (Other)
  Sender: FDA-Public Use
  Company Number: CA-PFIZER INC-2011038403

PATIENT
  Age: 27 Year
  Sex: Female

DRUGS (2)
  1. LYRICA [Suspect]
     Indication: PAIN
     Dosage: 50 MG, 3X/DAY
     Dates: start: 20090101
  2. ZYTRAM [Concomitant]
     Dosage: UNK

REACTIONS (2)
  - POOR PERIPHERAL CIRCULATION [None]
  - ENDOMETRIOSIS [None]
